FAERS Safety Report 9129287 (Version 1)
Quarter: 2013Q1

REPORT INFORMATION
  Report Type: Spontaneous
  Country: FR (occurrence: FR)
  Receive Date: 20130125
  Receipt Date: 20130125
  Transmission Date: 20140127
  Serious: Yes (Death, Hospitalization, Other)
  Sender: FDA-Public Use
  Company Number: FR-ASTRAZENECA-2013SE04649

PATIENT
  Age: 17939 Day
  Sex: Male

DRUGS (17)
  1. TENORMINE [Suspect]
     Route: 048
     Dates: start: 20120611, end: 20121001
  2. INEXIUM [Suspect]
     Route: 048
     Dates: start: 20120611, end: 20121001
  3. CARBOPLATIN [Suspect]
     Route: 042
     Dates: start: 20120623, end: 20120903
  4. DOLIPRANE [Suspect]
     Dosage: 1 GRAM, THREE TIMES PER DAY AS REQUIRED
     Route: 048
     Dates: start: 20120611, end: 20121001
  5. VOLTAREN [Suspect]
     Route: 003
     Dates: start: 20120924, end: 20121001
  6. OXYCONTIN [Suspect]
     Route: 042
     Dates: start: 20120611, end: 20121001
  7. OXYCONTIN [Suspect]
     Dosage: 10 MG/ML, 1 DF IN FOUR HOURS AS REQUIRED, OXYNORM
     Route: 042
     Dates: start: 20120611, end: 20121007
  8. CORTANCYL [Suspect]
     Route: 048
     Dates: start: 20120611, end: 20120805
  9. CORTANCYL [Suspect]
     Route: 048
     Dates: start: 20120806, end: 20120920
  10. CORTANCYL [Suspect]
     Route: 048
     Dates: start: 20120921
  11. PERFALGAN [Concomitant]
     Route: 042
     Dates: start: 20121001
  12. EUPANTOL [Concomitant]
     Route: 015
     Dates: start: 20121002
  13. ARIXTRA [Concomitant]
     Dosage: 7.5 MG/ 0.6 ML, ONE DF PER DAY
     Route: 058
     Dates: start: 20120810, end: 20121003
  14. LEXOMIL [Concomitant]
     Route: 048
     Dates: start: 20120611, end: 20121004
  15. DIFFU K [Concomitant]
     Route: 048
     Dates: start: 20120921, end: 20121001
  16. ALIMTA [Concomitant]
     Route: 042
     Dates: start: 20120723, end: 20120903
  17. HEMIGOXINE NATIVELLE [Concomitant]
     Route: 048
     Dates: start: 20120701, end: 20121001

REACTIONS (3)
  - Pancreatitis acute [Fatal]
  - Portal vein thrombosis [Unknown]
  - Malignant neoplasm progression [Fatal]
